FAERS Safety Report 8291229 (Version 4)
Quarter: 2014Q1

REPORT INFORMATION
  Report Type: Spontaneous
  Country: US (occurrence: None)
  Receive Date: 20111122
  Receipt Date: 20130107
  Transmission Date: 20141002
  Serious: No
  Sender: FDA-Public Use
  Company Number: PHHY2011US47886

PATIENT
  Age: 47 Year
  Sex: Female

DRUGS (5)
  1. GILENYA (FTY) CAPSULE, 0.5MG [Suspect]
     Indication: MULTIPLE SCLEROSIS
     Dosage: 0.5 MG, QD, ORAL
     Route: 048
     Dates: start: 20110526, end: 201203
  2. FAMPRIDINE [Concomitant]
  3. FOSAMAX (ALENDRONATE SODIUM) [Concomitant]
  4. LUNESTA (ESZOPICLONE) [Concomitant]
  5. MORPHINE [Concomitant]

REACTIONS (5)
  - Blood pressure fluctuation [None]
  - Visual impairment [None]
  - Hypoaesthesia [None]
  - Visual acuity reduced [None]
  - White blood cell count decreased [None]
